FAERS Safety Report 5085765-0 (Version None)
Quarter: 2006Q3

REPORT INFORMATION
  Report Type: 
  Country: None (occurrence: None)
  Receive Date: 20060817
  Receipt Date: 20060802
  Transmission Date: 20061208
  Serious: Yes (Hospitalization, Other)
  Sender: FDA-Public Use
  Company Number: 2006095024

PATIENT
  Age: 63 Year
  Sex: Male
  Weight: 86.1834 kg

DRUGS (3)
  1. CAVERJECT [Suspect]
     Indication: ERECTILE DYSFUNCTION
     Dosage: (40 MCG), PARENTERAL
     Route: 051
     Dates: start: 20050101
  2. VIAGRA [Suspect]
     Indication: ERECTILE DYSFUNCTION
     Dosage: (100 MG)
     Dates: start: 20030101
  3. ANTI-PARKINSON AGENTS (ANTI-PARKINSON AGENTS) [Concomitant]

REACTIONS (3)
  - DEVICE FAILURE [None]
  - DRUG INEFFECTIVE [None]
  - PHARMACEUTICAL PRODUCT COMPLAINT [None]
